FAERS Safety Report 24977552 (Version 1)
Quarter: 2025Q1

REPORT INFORMATION
  Report Type: Spontaneous
  Country: DE (occurrence: DE)
  Receive Date: 20250217
  Receipt Date: 20250217
  Transmission Date: 20250409
  Serious: Yes (Hospitalization)
  Sender: TEVA
  Company Number: None

PATIENT
  Age: 81 Year
  Sex: Male
  Weight: 97 kg

DRUGS (1)
  1. SULFAMETHOXAZOLE\TRIMETHOPRIM [Suspect]
     Active Substance: SULFAMETHOXAZOLE\TRIMETHOPRIM
     Indication: Urinary tract infection
     Dosage: 1-0-1,COTRIM FORTE-RATIOPHARM 800 MG/160 MG TABLETS
     Route: 065
     Dates: start: 20250107, end: 20250115

REACTIONS (5)
  - Pruritus [Recovering/Resolving]
  - Pustule [Recovering/Resolving]
  - Diarrhoea [Not Recovered/Not Resolved]
  - Rash macular [Recovering/Resolving]
  - Fall [Not Recovered/Not Resolved]

NARRATIVE: CASE EVENT DATE: 20250115
